FAERS Safety Report 6043131-5 (Version None)
Quarter: 2009Q1

REPORT INFORMATION
  Report Type: 
  Country: None (occurrence: None)
  Receive Date: 20090119
  Receipt Date: 20090108
  Transmission Date: 20090719
  Serious: Yes (Death, Hospitalization)
  Sender: FDA-Public Use
  Company Number: US-ROCHE-557123

PATIENT
  Age: 63 Year
  Sex: Female

DRUGS (2)
  1. XELODA [Suspect]
     Indication: GALLBLADDER CANCER
     Dosage: DOSAGE: 3 DOSE FORM IN MORNING AND 3 DOSEFORM IN EVENING
     Route: 065
     Dates: start: 20080321
  2. GEMZAR [Concomitant]
     Dosage: FORM: INFUSION; RECEIVED EVERY TWO WEEKS

REACTIONS (2)
  - SEPSIS [None]
  - WEIGHT DECREASED [None]
